FAERS Safety Report 25438145 (Version 1)
Quarter: 2025Q2

REPORT INFORMATION
  Report Type: Spontaneous
  Country: US (occurrence: US)
  Receive Date: 20250616
  Receipt Date: 20250616
  Transmission Date: 20250716
  Serious: No
  Sender: IPSEN BIOPHARMACEUTICALS, INC.
  Company Number: US-IPSEN Group, Research and Development-2025-13647

PATIENT
  Age: 84 Year
  Sex: Female

DRUGS (4)
  1. IQIRVO [Suspect]
     Active Substance: ELAFIBRANOR
     Indication: Primary biliary cholangitis
     Route: 048
     Dates: start: 202503
  2. IQIRVO [Suspect]
     Active Substance: ELAFIBRANOR
     Indication: Dysgeusia
  3. IQIRVO [Suspect]
     Active Substance: ELAFIBRANOR
     Indication: Off label use
  4. OCALIVA [Concomitant]
     Active Substance: OBETICHOLIC ACID

REACTIONS (2)
  - Constipation [Unknown]
  - Off label use [Unknown]

NARRATIVE: CASE EVENT DATE: 20250301
